FAERS Safety Report 5491090-6 (Version None)
Quarter: 2007Q4

REPORT INFORMATION
  Report Type: 
  Country: None (occurrence: None)
  Receive Date: 20071019
  Receipt Date: 20071008
  Transmission Date: 20080405
  Serious: Yes (Hospitalization, Other)
  Sender: FDA-Public Use
  Company Number: FR-PFIZER INC-2007084344

PATIENT
  Sex: Male

DRUGS (4)
  1. LYRICA [Suspect]
     Indication: DIABETIC NEUROPATHY
     Dosage: DAILY DOSE:1200MG
  2. LYRICA [Suspect]
     Indication: FIBROMYALGIA
  3. ANTIDEPRESSANTS [Concomitant]
  4. ANXIOLYTICS [Concomitant]

REACTIONS (5)
  - BLOOD GLUCOSE INCREASED [None]
  - OVERDOSE [None]
  - VERTIGO [None]
  - VISUAL DISTURBANCE [None]
  - WEIGHT INCREASED [None]
